FAERS Safety Report 19358200 (Version 1)
Quarter: 2021Q2

REPORT INFORMATION
  Report Type: Spontaneous
  Country: US (occurrence: US)
  Receive Date: 20210602
  Receipt Date: 20210602
  Transmission Date: 20210717
  Serious: Yes (Death)
  Sender: FDA-Public Use
  Company Number: None

PATIENT
  Age: 70 Year
  Sex: Female

DRUGS (30)
  1. TRAMADOL. [Concomitant]
     Active Substance: TRAMADOL
  2. EFFEXOR [Concomitant]
     Active Substance: VENLAFAXINE HYDROCHLORIDE
  3. INCRUSE ELLIPTA [Concomitant]
     Active Substance: UMECLIDINIUM BROMIDE
  4. XOPENEX [Concomitant]
     Active Substance: LEVALBUTEROL HYDROCHLORIDE
  5. KETOCONAZOLE CREAM [Concomitant]
     Active Substance: KETOCONAZOLE
  6. AMPICILLIN. [Concomitant]
     Active Substance: AMPICILLIN
  7. GABPENTIN [Concomitant]
  8. NOVOLOG [Concomitant]
     Active Substance: INSULIN ASPART
  9. ASPIRIN. [Concomitant]
     Active Substance: ASPIRIN
  10. ZOFRAN [Concomitant]
     Active Substance: ONDANSETRON HYDROCHLORIDE
  11. ACTHAR [Suspect]
     Active Substance: CORTICOTROPIN
     Dosage: ?          OTHER FREQUENCY:Q 72 HOURS ;?
     Route: 030
     Dates: start: 20210322, end: 20210526
  12. MECLIZINE [Concomitant]
     Active Substance: MECLIZINE HYDROCHLORIDE
  13. SPIRIVA [Concomitant]
     Active Substance: TIOTROPIUM BROMIDE MONOHYDRATE
  14. ISOSORBIDE. [Concomitant]
     Active Substance: ISOSORBIDE
  15. AMOXICILLIN. [Concomitant]
     Active Substance: AMOXICILLIN
  16. VITAMIN D3 [Concomitant]
     Active Substance: CHOLECALCIFEROL
  17. ALLOPURINOL. [Concomitant]
     Active Substance: ALLOPURINOL
  18. MONOITRATE [Concomitant]
  19. RANITIDINE. [Concomitant]
     Active Substance: RANITIDINE
  20. BISOPROLOL [Concomitant]
     Active Substance: BISOPROLOL
  21. PLAVIX [Concomitant]
     Active Substance: CLOPIDOGREL BISULFATE
  22. ALBUTEROL. [Concomitant]
     Active Substance: ALBUTEROL
  23. KEFLEX [Concomitant]
     Active Substance: CEPHALEXIN
  24. PENCILLIN [Concomitant]
     Active Substance: PENICILLIN
  25. STADOL [Concomitant]
     Active Substance: BUTORPHANOL TARTRATE
  26. FUROSEMIDE. [Concomitant]
     Active Substance: FUROSEMIDE
  27. LOSARTAN. [Concomitant]
     Active Substance: LOSARTAN
  28. ACTHAR [Suspect]
     Active Substance: CORTICOTROPIN
     Dosage: ?          OTHER FREQUENCY:Q 72 HOURS ;?
     Route: 030
     Dates: start: 20210224, end: 20210322
  29. FERROUS SULFATE. [Concomitant]
     Active Substance: FERROUS SULFATE
  30. NORCO [Concomitant]
     Active Substance: ACETAMINOPHEN\HYDROCODONE BITARTRATE

REACTIONS (3)
  - General physical health deterioration [None]
  - Skin ulcer [None]
  - Stomatitis [None]

NARRATIVE: CASE EVENT DATE: 20210526
